FAERS Safety Report 10009869 (Version 2)
Quarter: 2014Q1

REPORT INFORMATION
  Report Type: Spontaneous
  Country: US (occurrence: US)
  Receive Date: 20140312
  Receipt Date: 20140312
  Transmission Date: 20141002
  Serious: No
  Sender: FDA-Public Use
  Company Number: US-INCYTE CORPORATION-2013IN000033

PATIENT
  Sex: Male

DRUGS (2)
  1. JAKAFI [Suspect]
     Dosage: 15 MG, BID
     Route: 048
     Dates: start: 20120705
  2. JAKAFI [Suspect]
     Dosage: 5 MG, BID
     Route: 048

REACTIONS (3)
  - Memory impairment [Unknown]
  - Fatigue [Unknown]
  - Increased appetite [Unknown]
